FAERS Safety Report 5090714-5 (Version None)
Quarter: 2006Q3

REPORT INFORMATION
  Report Type: 
  Country: None (occurrence: None)
  Receive Date: 20060828
  Receipt Date: 20060823
  Transmission Date: 20061208
  Serious: Yes (Death, Hospitalization)
  Sender: FDA-Public Use
  Company Number: PHHO2006JP14067

PATIENT
  Age: 77 Year
  Sex: Male
  Weight: 53 kg

DRUGS (9)
  1. LOCHOL [Suspect]
     Indication: HYPERCHOLESTEROLAEMIA
     Dates: start: 20001027
  2. NITOROL [Suspect]
     Indication: ANGINA PECTORIS
     Dates: start: 19960401
  3. 8-HOUR BAYER [Suspect]
     Dates: start: 20010316
  4. AMARYL [Suspect]
  5. NATEGLINIDE [Suspect]
     Indication: DIABETES MELLITUS
     Dates: start: 20040402
  6. NIVADIL [Suspect]
     Indication: HYPERTENSION
     Dates: start: 20010201
  7. DAONIL [Concomitant]
  8. BUFFERIN [Concomitant]
  9. VASOLATOR [Concomitant]

REACTIONS (3)
  - DIARRHOEA [None]
  - SUDDEN DEATH [None]
  - VOMITING [None]
